FAERS Safety Report 19612035 (Version 2)
Quarter: 2021Q3

REPORT INFORMATION
  Report Type: Report from Study
  Country: US (occurrence: US)
  Receive Date: 20210726
  Receipt Date: 20210814
  Transmission Date: 20211014
  Serious: No
  Sender: FDA-Public Use
  Company Number: NVSC2021US163385

PATIENT
  Sex: Female

DRUGS (2)
  1. ENTRESTO [Suspect]
     Active Substance: SACUBITRIL\VALSARTAN
     Indication: PRODUCT USED FOR UNKNOWN INDICATION
     Dosage: UNK UNK, BID
     Route: 048
  2. ENTRESTO [Suspect]
     Active Substance: SACUBITRIL\VALSARTAN
     Route: 048

REACTIONS (6)
  - Overweight [Not Recovered/Not Resolved]
  - Weight decreased [Recovering/Resolving]
  - Myalgia [Recovering/Resolving]
  - Fluid retention [Recovering/Resolving]
  - Weight increased [Recovering/Resolving]
  - Hypersensitivity [Recovering/Resolving]
